FAERS Safety Report 4385741-7 (Version None)
Quarter: 2004Q2

REPORT INFORMATION
  Report Type: 
  Country: None (occurrence: None)
  Receive Date: 20040628
  Receipt Date: 20020516
  Transmission Date: 20050107
  Serious: Yes (Hospitalization, Other)
  Sender: FDA-Public Use
  Company Number: US-MERCK-0205USA02083

PATIENT
  Age: 79 Year
  Sex: Male
  Weight: 77 kg

DRUGS (7)
  1. ANTIMICROBIAL (UNSPECIFIED) [Concomitant]
     Route: 065
  2. PRINIVIL [Concomitant]
     Route: 065
  3. MEVACOR [Concomitant]
     Route: 065
  4. GLUCOPHAGE [Concomitant]
     Route: 065
  5. VIOXX [Suspect]
     Route: 048
     Dates: start: 20010401, end: 20010101
  6. HYTRIN [Concomitant]
     Route: 065
  7. TOLAZAMIDE [Concomitant]
     Route: 065

REACTIONS (23)
  - ABSCESS [None]
  - ANGIOPATHY [None]
  - BLOOD CREATININE INCREASED [None]
  - BLOOD PRESSURE DECREASED [None]
  - CALCULUS BLADDER [None]
  - CARDIAC FAILURE CONGESTIVE [None]
  - CARDIOMEGALY [None]
  - CHOLELITHIASIS [None]
  - CRACKLES LUNG [None]
  - DIZZINESS [None]
  - EPIDIDYMAL DISORDER [None]
  - GASTROOESOPHAGEAL REFLUX DISEASE [None]
  - HAEMATURIA [None]
  - INJURY [None]
  - MYOCARDIAL INFARCTION [None]
  - ORCHITIS [None]
  - PLEURAL EFFUSION [None]
  - PULMONARY FIBROSIS [None]
  - RENAL CYST [None]
  - SCAR [None]
  - SPINAL OSTEOARTHRITIS [None]
  - SYNCOPE [None]
  - URINARY TRACT INFECTION [None]
